FAERS Safety Report 21559858 (Version 2)
Quarter: 2022Q4

REPORT INFORMATION
  Report Type: Spontaneous
  Country: JP (occurrence: JP)
  Receive Date: 20221107
  Receipt Date: 20221214
  Transmission Date: 20230113
  Serious: Yes (Hospitalization, Other)
  Sender: FDA-Public Use
  Company Number: JP-GLAXOSMITHKLINE-JP2022JPN157328

PATIENT

DRUGS (3)
  1. SERETIDE [Suspect]
     Active Substance: FLUTICASONE PROPIONATE\SALMETEROL XINAFOATE
     Indication: Asthma
     Dosage: 500 ?G/DAY
  2. PRANLUKAST HEMIHYDRATE [Concomitant]
     Active Substance: PRANLUKAST HEMIHYDRATE
     Indication: Asthma
     Dosage: 450 MG/DAY
  3. THEOPHYLLINE [Concomitant]
     Active Substance: THEOPHYLLINE
     Indication: Asthma
     Dosage: 400 MG/DAY

REACTIONS (11)
  - Condition aggravated [Unknown]
  - Wheezing [Unknown]
  - Bronchiectasis [Not Recovered/Not Resolved]
  - Bronchial secretion retention [Unknown]
  - Obstructive airways disorder [Unknown]
  - Dyspnoea [Recovering/Resolving]
  - Cough [Recovering/Resolving]
  - Stridor [Recovering/Resolving]
  - Productive cough [Unknown]
  - Allergic bronchopulmonary mycosis [Unknown]
  - Therapeutic response decreased [Unknown]
